FAERS Safety Report 8593099-2 (Version None)
Quarter: 2012Q3

REPORT INFORMATION
  Report Type: 
  Country: None (occurrence: None)
  Receive Date: 20120814
  Receipt Date: 20120807
  Transmission Date: 20120928
  Serious: Yes (Death, Hospitalization, Other)
  Sender: FDA-Public Use
  Company Number: GB-JNJFOC-20120804471

PATIENT

DRUGS (13)
  1. ACETAMINOPHEN [Suspect]
     Indication: HEADACHE
     Route: 065
  2. ACETAMINOPHEN [Suspect]
     Indication: MUSCULOSKELETAL PAIN
     Route: 065
  3. NONSTEROIDAL ANTI-INFLAMMATORY AGENT (NOS) [Suspect]
     Indication: PRODUCT USED FOR UNKNOWN INDICATION
     Route: 065
  4. ACETAMINOPHEN/HYDROCODONE BITARTRATE [Suspect]
     Indication: PRODUCT USED FOR UNKNOWN INDICATION
     Dosage: DIHYDROCODEINE TARTRATE/PARACETAMOL
     Route: 065
  5. ACETAMINOPHEN [Suspect]
     Indication: SUICIDAL IDEATION
     Route: 065
  6. ACETAMINOPHEN [Suspect]
     Indication: CHEST PAIN
     Route: 065
  7. ACETAMINOPHEN [Suspect]
     Indication: ANALGESIC THERAPY
     Route: 065
  8. ACETAMINOPHEN AND CODEINE PHOSPHATE [Suspect]
     Indication: PRODUCT USED FOR UNKNOWN INDICATION
     Route: 065
  9. ASPIRIN [Suspect]
     Indication: PRODUCT USED FOR UNKNOWN INDICATION
     Route: 065
  10. ACETAMINOPHEN [Suspect]
     Indication: PRODUCT USED FOR UNKNOWN INDICATION
     Route: 042
  11. OPIATES [Suspect]
     Indication: PRODUCT USED FOR UNKNOWN INDICATION
     Route: 065
  12. ACETAMINOPHEN [Suspect]
     Indication: ABDOMINAL PAIN
     Route: 065
  13. ANTIDEPRESSANTS (NOS) [Suspect]
     Indication: PRODUCT USED FOR UNKNOWN INDICATION
     Route: 065

REACTIONS (6)
  - ACUTE HEPATIC FAILURE [None]
  - THROMBOCYTOPENIA [None]
  - OVERDOSE [None]
  - BLOOD LACTIC ACID INCREASED [None]
  - HEPATIC ENCEPHALOPATHY [None]
  - BLOOD CREATININE INCREASED [None]
